FAERS Safety Report 4314175-6 (Version None)
Quarter: 2004Q1

REPORT INFORMATION
  Report Type: 
  Country: None (occurrence: None)
  Receive Date: 20040305
  Receipt Date: 20040106
  Transmission Date: 20041129
  Serious: No
  Sender: FDA-Public Use
  Company Number: PHEH2004US00549

PATIENT
  Sex: Male

DRUGS (1)
  1. FORADILE (FORMOTEROL FUMARATE) DRY POWDER INHALER [Suspect]
     Dosage: INHALATION
     Route: 055
     Dates: start: 20031224, end: 20031224

REACTIONS (1)
  - SYNCOPE [None]
